FAERS Safety Report 13019142 (Version 1)
Quarter: 2016Q4

REPORT INFORMATION
  Report Type: Spontaneous
  Country: NO (occurrence: NO)
  Receive Date: 20161212
  Receipt Date: 20161212
  Transmission Date: 20170207
  Serious: Yes (Hospitalization, Other)
  Sender: FDA-Public Use
  Company Number: NO-TEVA-716272ISR

PATIENT
  Age: 74 Year
  Sex: Female

DRUGS (1)
  1. EPIRUBICIN ACTAVIS [Suspect]
     Active Substance: EPIRUBICIN
     Dosage: TREATED LAST WEEK
     Route: 042

REACTIONS (2)
  - Circulatory collapse [Unknown]
  - Anaphylactic shock [Unknown]

NARRATIVE: CASE EVENT DATE: 201611
